FAERS Safety Report 8885094 (Version 5)
Quarter: 2013Q2

REPORT INFORMATION
  Report Type: Spontaneous
  Country: US (occurrence: US)
  Receive Date: 20121105
  Receipt Date: 20130503
  Transmission Date: 20140414
  Serious: No
  Sender: FDA-Public Use
  Company Number: US-BIOGENIDEC-2012BI048101

PATIENT
  Age: 59 Year
  Sex: Female

DRUGS (4)
  1. TYSABRI [Suspect]
     Indication: MULTIPLE SCLEROSIS
     Route: 042
     Dates: start: 20120809, end: 20121120
  2. AVONEX [Concomitant]
  3. MUSCLE RELAXER [Concomitant]
  4. BACLOFEN [Concomitant]

REACTIONS (5)
  - Hepatic enzyme increased [Recovered/Resolved]
  - Rhinorrhoea [Recovered/Resolved]
  - Joint swelling [Not Recovered/Not Resolved]
  - Muscle spasms [Unknown]
  - Loss of control of legs [Unknown]
